FAERS Safety Report 15012725 (Version 2)
Quarter: 2018Q3

REPORT INFORMATION
  Report Type: Report from Study
  Country: US (occurrence: US)
  Receive Date: 20180614
  Receipt Date: 20180710
  Transmission Date: 20181010
  Serious: Yes (Other)
  Sender: FDA-Public Use
  Company Number: US-SHIRE-US201821235

PATIENT
  Age: 22 Year
  Sex: Female
  Weight: 65.31 kg

DRUGS (1)
  1. CUVITRU [Suspect]
     Active Substance: HUMAN IMMUNOGLOBULIN G
     Indication: IMMUNODEFICIENCY
     Dosage: 1 G, 1X/WEEK
     Route: 058
     Dates: start: 20180530, end: 20180628

REACTIONS (6)
  - Pyrexia [Recovering/Resolving]
  - Pain [Recovering/Resolving]
  - Urticaria [Recovered/Resolved]
  - Chest discomfort [Recovering/Resolving]
  - Cough [Recovering/Resolving]
  - Dyspnoea [Recovering/Resolving]

NARRATIVE: CASE EVENT DATE: 20180530
